FAERS Safety Report 8833536 (Version 2)
Quarter: 2012Q4

REPORT INFORMATION
  Report Type: 
  Country: TW (occurrence: TW)
  Receive Date: 20121010
  Receipt Date: 20121024
  Transmission Date: 20130627
  Serious: Yes (Other)
  Sender: FDA-Public Use
  Company Number: TW-AMGEN-TWNSP2012064352

PATIENT
  Age: 47 Year
  Sex: Female

DRUGS (7)
  1. ENBREL [Suspect]
     Indication: RHEUMATOID ARTHRITIS
     Dosage: 25 mg, weekly
     Route: 058
     Dates: start: 20090430, end: 20120920
  2. METHOTREXATE [Concomitant]
     Indication: RHEUMATOID ARTHRITIS
     Dosage: UNK
  3. METHOTREXATE [Concomitant]
     Dosage: 7.5 mg, weekly
     Dates: start: 20100107
  4. PREDNISOLONE [Concomitant]
     Indication: RHEUMATOID ARTHRITIS
     Dosage: 2.5 mg, 1x/day
     Dates: start: 20110331
  5. CELEBREX [Concomitant]
     Indication: RHEUMATOID ARTHRITIS
     Dosage: 200 mg, 1x/day
     Dates: start: 20110331
  6. EVOXAC [Concomitant]
     Indication: RHEUMATOID ARTHRITIS
     Dosage: UNK
  7. EVOXAC [Concomitant]
     Dosage: 30 mg, 2x/day
     Dates: start: 20110331

REACTIONS (1)
  - Breast cancer [Not Recovered/Not Resolved]
